FAERS Safety Report 13914603 (Version 1)
Quarter: 2017Q3

REPORT INFORMATION
  Report Type: Spontaneous
  Country: US (occurrence: None)
  Receive Date: 20170827
  Receipt Date: 20170827
  Transmission Date: 20171127
  Serious: No
  Sender: FDA-Public Use
  Company Number: None

PATIENT
  Age: 62 Year
  Sex: Female

DRUGS (1)
  1. VOTRIENT [Suspect]
     Active Substance: PAZOPANIB HYDROCHLORIDE

REACTIONS (4)
  - Hair colour changes [None]
  - Alopecia [None]
  - Diarrhoea [None]
  - Nephrotic syndrome [None]

NARRATIVE: CASE EVENT DATE: 20170825
